FAERS Safety Report 5193541-3 (Version None)
Quarter: 2006Q4

REPORT INFORMATION
  Report Type: 
  Country: None (occurrence: None)
  Receive Date: 20061228
  Receipt Date: 20060717
  Transmission Date: 20070319
  Serious: Yes (Hospitalization)
  Sender: FDA-Public Use
  Company Number: US-GLAXOSMITHKLINE-A0612493A

PATIENT
  Age: 81 Year
  Sex: Male
  Weight: 96 kg

DRUGS (21)
  1. FLONASE [Suspect]
     Indication: DRUG USE FOR UNKNOWN INDICATION
     Dosage: 4SPR TWICE PER DAY
     Route: 045
     Dates: start: 20060711
  2. CLINDAMYCIN [Suspect]
     Indication: PNEUMONIA
     Dosage: 600MG THREE TIMES PER DAY
     Route: 042
     Dates: start: 20060711, end: 20060714
  3. GENTAMICIN [Suspect]
     Indication: PNEUMONIA
     Dosage: 160MG PER DAY
     Route: 042
     Dates: start: 20060711, end: 20060714
  4. LEVAQUIN [Suspect]
     Indication: PNEUMONIA
     Dosage: 750MG PER DAY
     Route: 042
     Dates: start: 20060711, end: 20060714
  5. ZOCOR [Concomitant]
  6. COUMADIN [Concomitant]
  7. TRAVATAN [Concomitant]
  8. ALLOPURINOL SODIUM [Concomitant]
  9. FUROSEMIDE [Concomitant]
  10. GLIPIZIDE [Concomitant]
  11. VICODIN [Concomitant]
  12. NOVOLIN N [Concomitant]
  13. XOPENEX [Concomitant]
  14. LEVOTHYROXINE SODIUM [Concomitant]
  15. LISINOPRIL [Concomitant]
  16. METFORMIN HCL [Concomitant]
  17. NIACIN [Concomitant]
  18. OMEPRAZOLE [Concomitant]
  19. POTASSIUM CL [Concomitant]
  20. AVANDIA [Concomitant]
  21. VIAGRA [Concomitant]

REACTIONS (1)
  - RASH [None]
